FAERS Safety Report 13687494 (Version 2)
Quarter: 2018Q3

REPORT INFORMATION
  Report Type: Report from Study
  Country: None (occurrence: BR)
  Receive Date: 20170624
  Receipt Date: 20180720
  Transmission Date: 20181010
  Serious: Yes (Other)
  Sender: FDA-Public Use
  Company Number: BR-ABBVIE-17K-020-2013666-00

PATIENT
  Age: 41 Year
  Sex: Male
  Weight: 92 kg

DRUGS (4)
  1. PREDNISONE. [Suspect]
     Active Substance: PREDNISONE
     Route: 048
     Dates: end: 201703
  2. LANSOPRAZOLE. [Concomitant]
     Active Substance: LANSOPRAZOLE
     Indication: GASTRITIS
     Route: 048
  3. HUMIRA [Suspect]
     Active Substance: ADALIMUMAB
     Indication: ANKYLOSING SPONDYLITIS
     Route: 058
     Dates: start: 20170511, end: 20180629
  4. PREDNISONE. [Suspect]
     Active Substance: PREDNISONE
     Indication: PAIN IN EXTREMITY
     Route: 048
     Dates: start: 201702

REACTIONS (9)
  - Immunodeficiency [Not Recovered/Not Resolved]
  - Pain in extremity [Unknown]
  - Therapeutic response shortened [Not Recovered/Not Resolved]
  - Influenza [Not Recovered/Not Resolved]
  - Procedural pain [Unknown]
  - Pain [Not Recovered/Not Resolved]
  - Gastric polyps [Unknown]
  - Tonsillar inflammation [Recovered/Resolved]
  - Haematochezia [Not Recovered/Not Resolved]

NARRATIVE: CASE EVENT DATE: 2017
